FAERS Safety Report 11264513 (Version 1)
Quarter: 2015Q3

REPORT INFORMATION
  Report Type: Spontaneous
  Country: JP (occurrence: JP)
  Receive Date: 20150713
  Receipt Date: 20150713
  Transmission Date: 20151125
  Serious: Yes (Hospitalization)
  Sender: FDA-Public Use
  Company Number: JP-ACCORD-032132

PATIENT
  Age: 75 Year
  Sex: Female

DRUGS (2)
  1. ETOPOSIDE. [Suspect]
     Active Substance: ETOPOSIDE
     Indication: SMALL CELL CARCINOMA
     Dosage: VP-16?INITIALLLY RECEIVED FOUR COURSE FROM 19-JAN-2010.
  2. CARBOPLATIN. [Suspect]
     Active Substance: CARBOPLATIN
     Indication: SMALL CELL CARCINOMA
     Dosage: CBDCA?INITIALLLY RECEIVED FOUR COURSES FROM 19-JAN-2010

REACTIONS (5)
  - Constipation [Recovered/Resolved]
  - Listeria sepsis [Recovered/Resolved]
  - Listeriosis [Recovered/Resolved]
  - Pancytopenia [Recovered/Resolved]
  - Respiratory alkalosis [Recovered/Resolved]
